FAERS Safety Report 12882128 (Version 1)
Quarter: 2016Q4

REPORT INFORMATION
  Report Type: Report from Study
  Country: US (occurrence: US)
  Receive Date: 20161025
  Receipt Date: 20161025
  Transmission Date: 20170207
  Serious: Yes (Hospitalization, Other)
  Sender: FDA-Public Use
  Company Number: US-GILEAD-2016-0239748

PATIENT
  Age: 60 Year
  Sex: Female

DRUGS (2)
  1. AMBRISENTAN [Suspect]
     Active Substance: AMBRISENTAN
     Indication: PRODUCT USED FOR UNKNOWN INDICATION
     Dosage: 10 MG, QD
     Route: 065
  2. UPTRAVI [Concomitant]
     Active Substance: SELEXIPAG

REACTIONS (9)
  - Syncope [Unknown]
  - Visual impairment [Unknown]
  - Oxygen saturation abnormal [Not Recovered/Not Resolved]
  - Feeling abnormal [Unknown]
  - Peripheral swelling [Not Recovered/Not Resolved]
  - Hypotension [Unknown]
  - Dyspnoea exertional [Not Recovered/Not Resolved]
  - Headache [Unknown]
  - Head injury [Unknown]

NARRATIVE: CASE EVENT DATE: 201610
